FAERS Safety Report 8134434-9 (Version None)
Quarter: 2012Q1

REPORT INFORMATION
  Report Type: 
  Country: None (occurrence: None)
  Receive Date: 20120209
  Receipt Date: 20120125
  Transmission Date: 20120608
  Serious: Yes (Other)
  Sender: FDA-Public Use
  Company Number: 1000027825

PATIENT
  Age: 91 Year
  Sex: Female
  Weight: 60 kg

DRUGS (5)
  1. ESCITALOPRAM OXALATE [Suspect]
     Indication: DEPRESSION
     Dosage: 10 MG (10 MG, 1 IN 1 D), ORAL
     Route: 048
     Dates: start: 20110810, end: 20120130
  2. ESCITALOPRAM OXALATE [Suspect]
     Indication: DEPRESSION
     Dosage: 5 MG (5 MG, 1 IN 1 D), ORAL
     Route: 048
     Dates: start: 20120131
  3. ZYPREXA(OLANZAPINE) (TABLETS) (OLANZAPINE) [Concomitant]
  4. ARICEPT (DONEPEZIL HYDROCHLORIDE) (TABLETS) (DONEPEZIL HYDROCHLORIDE) [Concomitant]
  5. RISPERDAL (RISPERIDONE) (TABLETS) (RISPERIDONE) [Concomitant]

REACTIONS (3)
  - DEMENTIA [None]
  - OFF LABEL USE [None]
  - HALLUCINATION [None]
